FAERS Safety Report 5340310-7 (Version None)
Quarter: 2007Q2

REPORT INFORMATION
  Report Type: 
  Country: None (occurrence: None)
  Receive Date: 20070405
  Receipt Date: 20061221
  Transmission Date: 20071010
  Serious: Yes (Hospitalization)
  Sender: FDA-Public Use
  Company Number: US200612003260

PATIENT
  Age: 73 Year
  Sex: Male

DRUGS (4)
  1. CYMBALTA [Suspect]
     Indication: MYALGIA
     Dates: start: 20061101, end: 20061201
  2. PREDNISONE TAB [Concomitant]
  3. SYNTHROID [Concomitant]
  4. ANDROGEL [Concomitant]

REACTIONS (1)
  - INFLUENZA [None]
